FAERS Safety Report 4360320-6 (Version None)
Quarter: 2004Q2

REPORT INFORMATION
  Report Type: 
  Country: None (occurrence: None)
  Receive Date: 20040517
  Receipt Date: 20020119
  Transmission Date: 20050107
  Serious: Yes (Other)
  Sender: FDA-Public Use
  Company Number: ADE-2002-001

PATIENT
  Age: 50 Year
  Sex: Female

DRUGS (1)
  1. BUTALBITAL ACETAMINOPHEN AND CAFFEINE [Suspect]
     Indication: TENSION HEADACHE
     Dates: start: 20011219, end: 20020119

REACTIONS (1)
  - PRURITUS GENERALISED [None]
